FAERS Safety Report 7034851-4 (Version None)
Quarter: 2010Q4

REPORT INFORMATION
  Report Type: 
  Country: None (occurrence: None)
  Receive Date: 20101008
  Receipt Date: 20100929
  Transmission Date: 20110411
  Serious: Yes (Hospitalization)
  Sender: FDA-Public Use
  Company Number: JP-ROCHE-721594

PATIENT
  Sex: Female
  Weight: 72 kg

DRUGS (6)
  1. PEGASYS [Suspect]
     Route: 058
     Dates: start: 20100309, end: 20100727
  2. NOVOLIN R [Concomitant]
     Dosage: NOTE: 14-10-20 UNITS
     Route: 058
     Dates: start: 19920101
  3. LANTUS [Concomitant]
     Route: 058
  4. NEUER [Concomitant]
     Route: 048
     Dates: start: 20040214
  5. CELTECT [Concomitant]
     Route: 048
     Dates: start: 20040214
  6. INHIBACE [Concomitant]
     Route: 048
     Dates: start: 20000617

REACTIONS (2)
  - CARDIAC FAILURE CONGESTIVE [None]
  - CONGESTIVE CARDIOMYOPATHY [None]
